FAERS Safety Report 25085376 (Version 3)
Quarter: 2025Q3

REPORT INFORMATION
  Report Type: Spontaneous
  Country: US (occurrence: US)
  Receive Date: 20250317
  Receipt Date: 20250926
  Transmission Date: 20251020
  Serious: No
  Sender: ROCHE
  Company Number: US-ROCHE-10000230503

PATIENT
  Age: 33 Year
  Sex: Female

DRUGS (4)
  1. OCREVUS [Suspect]
     Active Substance: OCRELIZUMAB
     Indication: Multiple sclerosis
     Route: 042
     Dates: start: 201910
  2. OCREVUS [Suspect]
     Active Substance: OCRELIZUMAB
     Route: 042
     Dates: start: 20250911
  3. VITAMINS [Concomitant]
     Active Substance: VITAMINS
  4. TUMS [Concomitant]
     Active Substance: CALCIUM CARBONATE

REACTIONS (3)
  - Maternal exposure before pregnancy [Unknown]
  - No adverse event [Unknown]
  - Maternal exposure during pregnancy [Unknown]
